FAERS Safety Report 8085792-5 (Version None)
Quarter: 2012Q1

REPORT INFORMATION
  Report Type: 
  Country: None (occurrence: None)
  Receive Date: 20120128
  Receipt Date: 20110404
  Transmission Date: 20120608
  Serious: No
  Sender: FDA-Public Use
  Company Number: US-ABBOTT-11P-163-0716794-00

PATIENT
  Weight: 77.18 kg

DRUGS (2)
  1. HUMIRA [Suspect]
     Dates: start: 20110301
  2. HUMIRA [Suspect]
     Indication: RHEUMATOID ARTHRITIS
     Dates: start: 20110201, end: 20110301

REACTIONS (1)
  - INJECTION SITE PAIN [None]
